FAERS Safety Report 21860630 (Version 1)
Quarter: 2023Q1

REPORT INFORMATION
  Report Type: Spontaneous
  Country: US (occurrence: None)
  Receive Date: 20230113
  Receipt Date: 20230113
  Transmission Date: 20230418
  Serious: Yes (Hospitalization)
  Sender: FDA-Public Use
  Company Number: None

PATIENT
  Sex: Male
  Weight: 57.88 kg

DRUGS (16)
  1. MAVYRET [Suspect]
     Active Substance: GLECAPREVIR\PIBRENTASVIR
     Indication: Hepatitis C
     Dosage: OTHER QUANTITY : 3 TABLETS;?FREQUENCY : DAILY;?
     Route: 048
     Dates: start: 20201230, end: 20210224
  2. DOCUSATE SODIUM [Concomitant]
     Active Substance: DOCUSATE SODIUM
  3. ENTECAVIR [Concomitant]
     Active Substance: ENTECAVIR
  4. ENVARSUS XR [Concomitant]
     Active Substance: TACROLIMUS
  5. MYCOPHENOLIC ACID [Concomitant]
     Active Substance: MYCOPHENOLIC ACID
  6. NYSTATIN [Concomitant]
     Active Substance: NYSTATIN
  7. OXYCODONE [Concomitant]
     Active Substance: OXYCODONE
  8. PANTOPRAZOLE [Concomitant]
     Active Substance: PANTOPRAZOLE
  9. ROSUVASTATIN [Concomitant]
     Active Substance: ROSUVASTATIN
  10. BACTRIM [Concomitant]
     Active Substance: SULFAMETHOXAZOLE\TRIMETHOPRIM
  11. VALGANCICLOVIR [Concomitant]
     Active Substance: VALGANCICLOVIR
  12. CARVEDILOL [Concomitant]
     Active Substance: CARVEDILOL
  13. ASPIRIN [Concomitant]
     Active Substance: ASPIRIN
  14. ERGOCALCIFEROL [Concomitant]
     Active Substance: ERGOCALCIFEROL
  15. FINASTERIDE [Concomitant]
     Active Substance: FINASTERIDE
  16. TAMSULOSIN [Concomitant]
     Active Substance: TAMSULOSIN

REACTIONS (2)
  - Hydronephrosis [None]
  - Ureteric obstruction [None]

NARRATIVE: CASE EVENT DATE: 20210207
